FAERS Safety Report 15680801 (Version 1)
Quarter: 2018Q4

REPORT INFORMATION
  Report Type: Spontaneous
  Country: US (occurrence: US)
  Receive Date: 20181202
  Receipt Date: 20181202
  Transmission Date: 20190205
  Serious: No
  Sender: FDA-Public Use
  Company Number: None

PATIENT
  Age: 40 Year
  Sex: Male
  Weight: 100.35 kg

DRUGS (2)
  1. CLONAZEPAM. .5MG [Suspect]
     Active Substance: CLONAZEPAM
     Indication: ANXIETY
     Dosage: QUANTITY:30 TABLET(S);?
     Route: 048
     Dates: start: 20181130, end: 20181201
  2. CLONAZEPAM. .5MG [Suspect]
     Active Substance: CLONAZEPAM
     Indication: INSOMNIA
     Dosage: QUANTITY:30 TABLET(S);?
     Route: 048
     Dates: start: 20181130, end: 20181201

REACTIONS (3)
  - Product substitution issue [None]
  - Headache [None]
  - Treatment failure [None]

NARRATIVE: CASE EVENT DATE: 20181201
